FAERS Safety Report 22378935 (Version 4)
Quarter: 2024Q4

REPORT INFORMATION
  Report Type: Report from Study
  Country: US (occurrence: US)
  Receive Date: 20230529
  Receipt Date: 20241031
  Transmission Date: 20250115
  Serious: No
  Sender: NOVARTIS
  Company Number: US-002147023-NVSC2023US120701

PATIENT
  Sex: Female

DRUGS (2)
  1. KESIMPTA [Suspect]
     Active Substance: OFATUMUMAB
     Indication: Product used for unknown indication
     Dosage: UNK
     Route: 065
     Dates: start: 20230516
  2. KESIMPTA [Suspect]
     Active Substance: OFATUMUMAB
     Dosage: UNK, EVERY OTHER MONTH
     Route: 065

REACTIONS (1)
  - Chills [Unknown]
